FAERS Safety Report 9061229 (Version 2)
Quarter: 2013Q1

REPORT INFORMATION
  Report Type: Spontaneous
  Country: KR (occurrence: KR)
  Receive Date: 20130204
  Receipt Date: 20130321
  Transmission Date: 20140127
  Serious: Yes (Hospitalization)
  Sender: FDA-Public Use
  Company Number: KR-SANOFI-AVENTIS-2013SA009403

PATIENT
  Age: 42 Year
  Sex: Male

DRUGS (3)
  1. RIFAMPICIN [Suspect]
     Indication: PULMONARY TUBERCULOSIS
     Route: 065
  2. ISONIAZID [Concomitant]
     Indication: PULMONARY TUBERCULOSIS
  3. ETHAMBUTOL [Concomitant]
     Indication: PULMONARY TUBERCULOSIS

REACTIONS (22)
  - Fanconi syndrome [Recovered/Resolved]
  - Renal tubular acidosis [Recovered/Resolved]
  - Hypokalaemia [Recovered/Resolved]
  - Acidosis hyperchloraemic [Recovered/Resolved]
  - Proteinuria [Recovered/Resolved]
  - Hypophosphataemia [Recovered/Resolved]
  - Hyperphosphaturia [Recovered/Resolved]
  - Hypouricaemia [Recovered/Resolved]
  - Hyperuricosuria [Recovered/Resolved]
  - Aminoaciduria [Recovered/Resolved]
  - Glycosuria [Recovered/Resolved]
  - Haematuria [Recovered/Resolved]
  - Beta 2 microglobulin urine increased [Recovered/Resolved]
  - Renin increased [Recovered/Resolved]
  - Blood aldosterone increased [Recovered/Resolved]
  - Urine potassium increased [Recovered/Resolved]
  - Paralysis [Unknown]
  - Muscular weakness [Recovered/Resolved]
  - Tubulointerstitial nephritis [Unknown]
  - Kidney fibrosis [Recovered/Resolved]
  - IgA nephropathy [Recovered/Resolved]
  - Renal tubular atrophy [Recovered/Resolved]
